FAERS Safety Report 5803425-2 (Version None)
Quarter: 2008Q2

REPORT INFORMATION
  Report Type: 
  Country: None (occurrence: None)
  Receive Date: 20080627
  Receipt Date: 20070613
  Transmission Date: 20081010
  Serious: Yes (Other)
  Sender: FDA-Public Use
  Company Number: 38127

PATIENT
  Age: 53 Year
  Sex: Male
  Weight: 112 kg

DRUGS (1)
  1. VECURONIUM BROMIDE [Suspect]
     Indication: SEDATION
     Dosage: 35MG
     Dates: start: 20070611

REACTIONS (1)
  - DRUG INEFFECTIVE [None]
